FAERS Safety Report 12508182 (Version 2)
Quarter: 2016Q3

REPORT INFORMATION
  Report Type: Spontaneous
  Country: CH (occurrence: CH)
  Receive Date: 20160629
  Receipt Date: 20160705
  Transmission Date: 20161109
  Serious: Yes (Death, Hospitalization, Other)
  Sender: FDA-Public Use
  Company Number: CH-PFIZER INC-2016315220

PATIENT
  Age: 68 Year
  Sex: Female

DRUGS (22)
  1. DAFALGAN [Suspect]
     Active Substance: ACETAMINOPHEN
     Indication: PAIN
     Dosage: 1 G, 4X/DAY
     Route: 048
     Dates: start: 20160514, end: 20160523
  2. LASIX [Concomitant]
     Active Substance: FUROSEMIDE
     Dosage: UNK
  3. THIOPENTHAL [Concomitant]
     Dosage: UNK
  4. DORMICUM /00634101/ [Concomitant]
     Active Substance: MIDAZOLAM\MIDAZOLAM HYDROCHLORIDE
     Dosage: UNK
  5. TEMESTA /00273201/ [Concomitant]
     Active Substance: LORAZEPAM
     Dosage: UNK
  6. MORPHIN /00036303/ [Concomitant]
     Active Substance: MORPHINE
     Dosage: UNK
  7. CIPROXIN /00697201/ [Concomitant]
     Active Substance: CIPROFLOXACIN
     Dosage: UNK
  8. CO-AMOXI [Concomitant]
     Active Substance: AMOXICILLIN\CLAVULANATE POTASSIUM
     Dosage: UNK
  9. ZYLORIC [Suspect]
     Active Substance: ALLOPURINOL
     Indication: GOUT
     Dosage: 300 MG, 1X/DAY
     Route: 048
     Dates: start: 20160330
  10. LYRICA [Concomitant]
     Active Substance: PREGABALIN
     Dosage: UNK
  11. MOTILIUM [Concomitant]
     Active Substance: DOMPERIDONE
     Dosage: UNK
  12. TIENAM [Concomitant]
     Active Substance: CILASTATIN SODIUM\IMIPENEM
     Dosage: UNK
  13. PREDNISON [Concomitant]
     Active Substance: PREDNISONE
     Dosage: UNK
  14. IBUPROFEN. [Concomitant]
     Active Substance: IBUPROFEN
     Dosage: UNK
  15. PANTOZOL [Suspect]
     Active Substance: PANTOPRAZOLE SODIUM
     Indication: DUODENOGASTRIC REFLUX
     Dosage: 40 MG, QD
     Route: 048
     Dates: start: 20160330, end: 20160523
  16. FORTECORTIN /00016001/ [Concomitant]
     Active Substance: DEXAMETHASONE
     Dosage: UNK
  17. ROCEPHIN [Concomitant]
     Active Substance: CEFTRIAXONE SODIUM
     Dosage: UNK
  18. FRAGMIN [Concomitant]
     Active Substance: DALTEPARIN SODIUM
     Dosage: UNK
  19. NOVALGIN [Concomitant]
     Active Substance: METAMIZOLE SODIUM
     Dosage: UNK
  20. SOLU-MEDROL [Concomitant]
     Active Substance: METHYLPREDNISOLONE SODIUM SUCCINATE
     Dosage: UNK
  21. DUROGESIC [Concomitant]
     Active Substance: FENTANYL
     Dosage: UNK
  22. CEFAZOLIN [Concomitant]
     Active Substance: CEFAZOLIN
     Dosage: UNK

REACTIONS (1)
  - Toxic epidermal necrolysis [Fatal]

NARRATIVE: CASE EVENT DATE: 20160520
